FAERS Safety Report 9042241 (Version 1)
Quarter: 2013Q1

REPORT INFORMATION
  Report Type: Report from Study
  Country: US (occurrence: US)
  Receive Date: 20130129
  Receipt Date: 20130129
  Transmission Date: 20140127
  Serious: No
  Sender: FDA-Public Use
  Company Number: US-ABBOTT-12P-163-0904762-00

PATIENT
  Age: 28 Year
  Sex: Male

DRUGS (6)
  1. HUMIRA 40 MG/0.8 ML PEN [Suspect]
     Indication: COLITIS ULCERATIVE
     Dosage: 1ST OF 4 LOADING DOSES
     Dates: start: 20120214
  2. BALSALAZIDE [Concomitant]
     Indication: PRODUCT USED FOR UNKNOWN INDICATION
     Dosage: 750 MG 3 PILLS X 3 TIMES DAILY
  3. IMURAN [Concomitant]
     Indication: PRODUCT USED FOR UNKNOWN INDICATION
  4. PREDNISONE [Concomitant]
     Indication: PRODUCT USED FOR UNKNOWN INDICATION
     Dosage: 10 MG DAILY, WEANING OFF
  5. XANAX [Concomitant]
     Indication: ANXIETY
  6. VICODIN [Concomitant]
     Indication: ARTHRALGIA
     Dosage: AS REQUIRED

REACTIONS (1)
  - Injection site pain [Recovered/Resolved]
